FAERS Safety Report 17315140 (Version 1)
Quarter: 2020Q1

REPORT INFORMATION
  Report Type: Spontaneous
  Country: US (occurrence: US)
  Receive Date: 20200124
  Receipt Date: 20200124
  Transmission Date: 20200409
  Serious: No
  Sender: FDA-Public Use
  Company Number: US-MYLANLABS-2020M1006025

PATIENT
  Sex: Female
  Weight: 72 kg

DRUGS (6)
  1. LIDOCAINE PATCH [Suspect]
     Active Substance: LIDOCAINE
     Indication: SCOLIOSIS
  2. GABAPENTIN. [Concomitant]
     Active Substance: GABAPENTIN
     Indication: NEURALGIA
     Dosage: 300MG 3 TIMES A DAY
  3. CELEBREX [Concomitant]
     Active Substance: CELECOXIB
     Indication: OSTEOARTHRITIS
     Dosage: 200 MG ONCE A DAY
  4. LIDOCAINE PATCH [Suspect]
     Active Substance: LIDOCAINE
     Indication: SCIATICA
  5. LIDOCAINE PATCH [Suspect]
     Active Substance: LIDOCAINE
     Indication: MUSCLE SPASMS
  6. LIDOCAINE PATCH [Suspect]
     Active Substance: LIDOCAINE
     Indication: NEURALGIA
     Dosage: ONE EVERY 12 HOURS
     Route: 003

REACTIONS (4)
  - Product adhesion issue [Not Recovered/Not Resolved]
  - Wrong technique in product usage process [Unknown]
  - Product quality issue [Not Recovered/Not Resolved]
  - Off label use [Not Recovered/Not Resolved]
